FAERS Safety Report 8093319-7 (Version None)
Quarter: 2012Q1

REPORT INFORMATION
  Report Type: 
  Country: None (occurrence: None)
  Receive Date: 20120128
  Receipt Date: 20111012
  Transmission Date: 20120608
  Serious: No
  Sender: FDA-Public Use
  Company Number: US-ABBOTT-11P-163-0848051-00

PATIENT
  Sex: Female
  Weight: 62.652 kg

DRUGS (11)
  1. HUMIRA [Suspect]
     Indication: PSORIASIS
     Dates: start: 20110505, end: 20111003
  2. PRILOSEC [Concomitant]
     Indication: GASTROOESOPHAGEAL REFLUX DISEASE
  3. PREDNISONE TAB [Concomitant]
     Indication: PSORIASIS
  4. AMBIEN [Concomitant]
     Indication: INSOMNIA
  5. ALBUTEROL [Concomitant]
     Indication: ASTHMA
  6. FOSAMAX [Concomitant]
     Indication: OSTEOPOROSIS
  7. FLUTICASONE PROPIONATE [Concomitant]
     Indication: PRODUCT USED FOR UNKNOWN INDICATION
     Dosage: 2 SPRAYS PER NASAL, DAILY
     Route: 045
  8. CLOBETASOL [Concomitant]
     Indication: PSORIASIS
     Route: 061
  9. SIMVASTATIN [Concomitant]
     Indication: BLOOD CHOLESTEROL INCREASED
  10. FLONASE [Concomitant]
     Indication: ALLERGIC SINUSITIS
  11. ZYRTEC [Concomitant]
     Indication: HYPERSENSITIVITY
     Dosage: OTC

REACTIONS (4)
  - PSORIASIS [None]
  - DRUG INEFFECTIVE [None]
  - SKIN PLAQUE [None]
  - PRURITUS [None]
